FAERS Safety Report 11058218 (Version 1)
Quarter: 2015Q2

REPORT INFORMATION
  Report Type: Spontaneous
  Country: US (occurrence: US)
  Receive Date: 20150423
  Receipt Date: 20150423
  Transmission Date: 20150821
  Serious: Yes (Other)
  Sender: FDA-Public Use
  Company Number: US-AMGEN-USASP2015037613

PATIENT
  Sex: Female

DRUGS (1)
  1. PROLIA [Suspect]
     Active Substance: DENOSUMAB
     Indication: PRODUCT USED FOR UNKNOWN INDICATION
     Dosage: UNK, UNK
     Route: 065

REACTIONS (8)
  - Splenectomy [Unknown]
  - Lung infection [Unknown]
  - Asthenia [Unknown]
  - Nasopharyngitis [Unknown]
  - Pharyngitis [Unknown]
  - Anaemia [Unknown]
  - Swelling [Unknown]
  - Eye infection [Unknown]
